FAERS Safety Report 8765160 (Version 3)
Quarter: 2012Q4

REPORT INFORMATION
  Report Type: 
  Country: PL (occurrence: PL)
  Receive Date: 20120903
  Receipt Date: 20121025
  Transmission Date: 20130627
  Serious: Yes (Other)
  Sender: FDA-Public Use
  Company Number: PL-AMGEN-POLSP2012055063

PATIENT
  Age: 41 Year

DRUGS (2)
  1. NEULASTA [Suspect]
     Indication: CHEMOTHERAPY
  2. ANTINEOPLASTIC AGENTS [Concomitant]
     Indication: BREAST CANCER
     Dosage: UNK
     Dates: start: 20120529

REACTIONS (8)
  - Febrile neutropenia [Recovering/Resolving]
  - Pseudomembranous colitis [Unknown]
  - Generalised oedema [Not Recovered/Not Resolved]
  - Diarrhoea [Unknown]
  - Flatulence [Unknown]
  - Thrombophlebitis [Unknown]
  - Dyspnoea [Unknown]
  - Bacterial test positive [Unknown]
